FAERS Safety Report 9500796 (Version 1)
Quarter: 2013Q1

REPORT INFORMATION
  Report Type: Spontaneous
  Country: US (occurrence: None)
  Receive Date: 20130107
  Receipt Date: 20130107
  Transmission Date: 20140127
  Serious: No
  Sender: FDA-Public Use
  Company Number: PHHY2011US117437

PATIENT
  Sex: Female

DRUGS (8)
  1. GILENYA (FINGOLIMOD) CAPSULE, 0.5MG [Suspect]
     Indication: MULTIPLE SCLEROSIS
     Route: 048
     Dates: start: 20110113
  2. LORTAB /00607101/ [Suspect]
     Indication: PAIN
     Dosage: 10-325MG BID PRN
  3. CHLOROXYLENOL\HEXACHLOROPHENE [Suspect]
  4. SKELAXIN (METAXALONE) [Concomitant]
  5. LAMICTAL (LAMOTRIGINE) [Concomitant]
  6. PREDNISONE (PREDNISONE) [Concomitant]
  7. KEPPRA (LEVETIRACETAM), 500 MG [Concomitant]
  8. NUEDEXTA (DEXTROMETHORPHAN HYDROBROMIDE, QUINIDINE SULFATE) [Concomitant]

REACTIONS (2)
  - Herpes zoster [None]
  - Rash [None]
